FAERS Safety Report 21408950 (Version 3)
Quarter: 2023Q4

REPORT INFORMATION
  Report Type: Spontaneous
  Country: US (occurrence: US)
  Receive Date: 20221004
  Receipt Date: 20231124
  Transmission Date: 20240109
  Serious: No
  Sender: FDA-Public Use
  Company Number: US-SA-SAC20220928000529

PATIENT
  Age: 87 Year
  Sex: Female

DRUGS (1)
  1. DUPIXENT [Suspect]
     Active Substance: DUPILUMAB
     Indication: Dermatitis
     Dosage: 300 MG, QOW
     Route: 058

REACTIONS (7)
  - Swelling of eyelid [Unknown]
  - Erythema of eyelid [Unknown]
  - Erythema [Unknown]
  - Eye pruritus [Not Recovered/Not Resolved]
  - Rash [Unknown]
  - Blepharitis [Unknown]
  - Product use in unapproved indication [Unknown]
